FAERS Safety Report 21581057 (Version 2)
Quarter: 2022Q4

REPORT INFORMATION
  Report Type: Report from Study
  Country: US (occurrence: US)
  Receive Date: 20221111
  Receipt Date: 20221116
  Transmission Date: 20230112
  Serious: No
  Sender: FDA-Public Use
  Company Number: US-ABBVIE-4138915

PATIENT
  Sex: Female

DRUGS (5)
  1. RINVOQ [Suspect]
     Active Substance: UPADACITINIB
     Indication: Rheumatoid arthritis
     Route: 048
  2. PREDNISONE [Concomitant]
     Active Substance: PREDNISONE
     Indication: Product used for unknown indication
  3. PFIZER-BIONTECH COVID-19 VACCINE [Concomitant]
     Active Substance: TOZINAMERAN
     Indication: COVID-19 immunisation
     Dosage: 1ST DOSE, 1 IN ONCE.
     Route: 030
     Dates: start: 20210729, end: 20210729
  4. PFIZER-BIONTECH COVID-19 VACCINE [Concomitant]
     Active Substance: TOZINAMERAN
     Indication: COVID-19 immunisation
     Dosage: 2ND DOSE, 1 IN ONCE.
     Route: 030
     Dates: start: 20210915, end: 20210915
  5. IBUPROFEN [Concomitant]
     Active Substance: IBUPROFEN
     Indication: Product used for unknown indication

REACTIONS (9)
  - Erythema [Not Recovered/Not Resolved]
  - Genital pain [Not Recovered/Not Resolved]
  - Erythema [Not Recovered/Not Resolved]
  - Hypoaesthesia [Not Recovered/Not Resolved]
  - Blood disorder [Not Recovered/Not Resolved]
  - Paraesthesia [Unknown]
  - Genital tract inflammation [Unknown]
  - Skin disorder [Unknown]
  - Musculoskeletal disorder [Not Recovered/Not Resolved]

NARRATIVE: CASE EVENT DATE: 20220101
